FAERS Safety Report 14258119 (Version 3)
Quarter: 2018Q2

REPORT INFORMATION
  Report Type: Spontaneous
  Country: US (occurrence: US)
  Receive Date: 20171207
  Receipt Date: 20180602
  Transmission Date: 20180711
  Serious: Yes (Hospitalization, Disabling, Other)
  Sender: FDA-Public Use
  Company Number: US-ASTRAZENECA-2017SF24063

PATIENT
  Age: 20042 Day
  Sex: Male
  Weight: 103 kg

DRUGS (43)
  1. COUMADIN [Concomitant]
     Active Substance: WARFARIN SODIUM
     Indication: ANTICOAGULANT THERAPY
     Route: 048
     Dates: start: 20141211
  2. COUMADIN [Concomitant]
     Active Substance: WARFARIN SODIUM
     Indication: ANTICOAGULANT THERAPY
     Route: 048
     Dates: start: 201411
  3. LIPITOR [Concomitant]
     Active Substance: ATORVASTATIN CALCIUM
     Indication: BLOOD CHOLESTEROL ABNORMAL
     Dates: start: 201501
  4. GLUCOPHAGE [Concomitant]
     Active Substance: METFORMIN HYDROCHLORIDE
     Indication: DIABETES MELLITUS
     Route: 048
     Dates: start: 20140603
  5. CETRIZINE HCL [Concomitant]
     Dosage: 10.0MG UNKNOWN
     Dates: start: 20160220
  6. CLINORIL [Concomitant]
     Active Substance: SULINDAC
     Dosage: PRN
     Route: 048
     Dates: start: 20170612
  7. ASPIRIN. [Concomitant]
     Active Substance: ASPIRIN
     Route: 048
     Dates: start: 20140603
  8. POTASSIUM GLUCONATE [Concomitant]
     Active Substance: POTASSIUM GLUCONATE
     Route: 048
     Dates: start: 20140603
  9. ATARAX [Concomitant]
     Active Substance: HYDROXYZINE HYDROCHLORIDE
     Indication: INSOMNIA
     Route: 048
     Dates: start: 20170612
  10. AUGMENTIN [Concomitant]
     Active Substance: AMOXICILLIN\CLAVULANATE POTASSIUM
     Dosage: 875 MG-125 MG ORAL TABLET (PRESCRIBE): 1 TAB(S), PO, Q12HR, X 10 DAY(S)
     Route: 048
     Dates: start: 20161126
  11. FARXIGA [Suspect]
     Active Substance: DAPAGLIFLOZIN PROPANEDIOL
     Indication: TYPE 2 DIABETES MELLITUS
     Dosage: 10 MG, UNKNOWN
     Route: 048
     Dates: start: 201403
  12. FLEXERIL [Concomitant]
     Active Substance: CYCLOBENZAPRINE HYDROCHLORIDE
     Route: 048
     Dates: start: 20171209
  13. TYLENOL [Concomitant]
     Active Substance: ACETAMINOPHEN
     Route: 048
     Dates: start: 20141215
  14. CIPRO [Concomitant]
     Active Substance: CIPROFLOXACIN HYDROCHLORIDE
  15. ONGLYZA/KOMBIGLYZE [Concomitant]
     Dosage: 5-1000 MG
     Route: 048
     Dates: start: 201212
  16. LEVAQUIN [Concomitant]
     Active Substance: LEVOFLOXACIN
     Route: 048
     Dates: start: 20140603
  17. FENOFIBRATE. [Concomitant]
     Active Substance: FENOFIBRATE
     Route: 048
     Dates: start: 20140603
  18. MUCINEX [Concomitant]
     Active Substance: GUAIFENESIN
     Dosage: 1 TAB(S) ( 600 MG ), PO, Q12 HR, # 20 TAB(S)
     Route: 048
     Dates: start: 20161208
  19. ULTRAM [Concomitant]
     Active Substance: TRAMADOL HYDROCHLORIDE
     Dates: start: 20141213
  20. ZOFRAN [Concomitant]
     Active Substance: ONDANSETRON HYDROCHLORIDE
     Route: 048
     Dates: start: 20141226
  21. ACTOS [Concomitant]
     Active Substance: PIOGLITAZONE HYDROCHLORIDE
     Indication: DIABETES MELLITUS
     Dates: start: 201711
  22. PROTONIX [Concomitant]
     Active Substance: PANTOPRAZOLE SODIUM
     Dates: start: 20141226
  23. CRANBERRY. [Concomitant]
     Active Substance: CRANBERRY
     Dosage: DAILY
     Route: 048
     Dates: start: 20140603
  24. VENTOLIN HFA [Concomitant]
     Active Substance: ALBUTEROL SULFATE
     Dosage: 2 PUFF(S), INH, Q4 HRS, PRN
  25. FARXIGA [Suspect]
     Active Substance: DAPAGLIFLOZIN PROPANEDIOL
     Indication: TYPE 2 DIABETES MELLITUS
     Route: 048
     Dates: start: 20140603
  26. MACRODANTIN [Concomitant]
     Active Substance: NITROFURANTOIN
     Dates: start: 2017
  27. DIFLUCAN [Concomitant]
     Active Substance: FLUCONAZOLE
     Dates: start: 20150101
  28. GLUCOPHAGE [Concomitant]
     Active Substance: METFORMIN HYDROCHLORIDE
     Indication: DIABETES MELLITUS
     Dosage: 1000, TWICE DAILY
     Dates: start: 201105
  29. BYETTA [Concomitant]
     Active Substance: EXENATIDE
     Dates: start: 201801
  30. GLUCOTROL [Concomitant]
     Active Substance: GLIPIZIDE
     Dates: start: 201007
  31. CENTRUM [Concomitant]
     Active Substance: VITAMINS
     Dosage: DAILY
     Route: 048
     Dates: start: 20140603
  32. NORCO [Concomitant]
     Active Substance: ACETAMINOPHEN\HYDROCODONE BITARTRATE
     Dosage: 75-325 MG, EVERY FOUR-SIX HOURS
     Route: 048
     Dates: start: 20150126
  33. VICOPROFEN [Concomitant]
     Active Substance: HYDROCODONE BITARTRATE\IBUPROFEN
     Dosage: 7.5-200 MG, EVERY FOUR-SIX HOURS
     Route: 048
     Dates: start: 20150126
  34. BENZONATATE. [Concomitant]
     Active Substance: BENZONATATE
     Dosage: 200.0MG UNKNOWN
     Dates: start: 20151204
  35. CIALIS [Concomitant]
     Active Substance: TADALAFIL
     Dosage: 20.0MG UNKNOWN
     Dates: start: 20110514
  36. ZYRTEC [Concomitant]
     Active Substance: CETIRIZINE HYDROCHLORIDE
     Route: 048
     Dates: start: 20170612
  37. NEURONTIN [Concomitant]
     Active Substance: GABAPENTIN
     Indication: NEURALGIA
     Route: 048
     Dates: start: 20141209
  38. NEURONTIN [Concomitant]
     Active Substance: GABAPENTIN
     Indication: NEURALGIA
     Dates: start: 201501
  39. CRESTOR [Concomitant]
     Active Substance: ROSUVASTATIN CALCIUM
     Route: 048
     Dates: start: 20140603
  40. LISINOPRIL. [Concomitant]
     Active Substance: LISINOPRIL
     Route: 048
     Dates: start: 20140603
  41. PREDNISONE. [Concomitant]
     Active Substance: PREDNISONE
     Route: 048
     Dates: start: 20140927
  42. JARDIANCE [Concomitant]
     Active Substance: EMPAGLIFLOZIN
     Route: 048
     Dates: start: 20170612
  43. BYDUREON [Concomitant]
     Active Substance: EXENATIDE
     Dosage: 2 MG/O.85 ML SUBCUTANEOUS SUSPENSION, EXTENDED RELEASE: ( 2 MG ), SUBCUTANEOUS, 1 X/WK, 3.4 ML
     Route: 058
     Dates: start: 20170612

REACTIONS (12)
  - Urinary tract obstruction [Unknown]
  - Urinary tract infection [Unknown]
  - Diabetic ketoacidosis [Recovered/Resolved]
  - Dysphagia [Unknown]
  - Thrombocytosis [Unknown]
  - Coma [Unknown]
  - Leukocytosis [Unknown]
  - Deep vein thrombosis [Unknown]
  - Acute respiratory failure [Unknown]
  - Streptococcal sepsis [Unknown]
  - Pneumonia [Unknown]
  - Hemiplegia [Unknown]

NARRATIVE: CASE EVENT DATE: 20140927
